FAERS Safety Report 24934585 (Version 1)
Quarter: 2025Q1

REPORT INFORMATION
  Report Type: Report from Study
  Country: US (occurrence: US)
  Receive Date: 20250206
  Receipt Date: 20250206
  Transmission Date: 20250409
  Serious: No
  Sender: EXELIXIS
  Company Number: US-EXELIXIS-EXL-2024-001072

PATIENT
  Age: 70 Year
  Sex: Male

DRUGS (16)
  1. CABOMETYX [Suspect]
     Active Substance: CABOZANTINIB S-MALATE
     Indication: Renal cancer
     Dosage: 60 MG, QD
  2. KEYTRUDA [Suspect]
     Active Substance: PEMBROLIZUMAB
     Indication: Renal cancer
  3. TRAMADOL [Concomitant]
     Active Substance: TRAMADOL
  4. TOUJEO [Concomitant]
     Active Substance: INSULIN GLARGINE
  5. TYLENOL [Concomitant]
     Active Substance: ACETAMINOPHEN
  6. FEXOFENADINE [Concomitant]
     Active Substance: FEXOFENADINE HYDROCHLORIDE
  7. FLUTICASONE [Concomitant]
     Active Substance: FLUTICASONE
  8. FARXIGA [Concomitant]
     Active Substance: DAPAGLIFLOZIN PROPANEDIOL
  9. Vitd3 [Concomitant]
  10. ALPRAZOLAM [Concomitant]
     Active Substance: ALPRAZOLAM
  11. TAMSULOSIN [Concomitant]
     Active Substance: TAMSULOSIN
  12. SIMVASTATIN [Concomitant]
     Active Substance: SIMVASTATIN
  13. DULOXETINE [Concomitant]
     Active Substance: DULOXETINE
  14. SYNTHROID [Concomitant]
     Active Substance: LEVOTHYROXINE SODIUM
  15. TRESIBA [Concomitant]
     Active Substance: INSULIN DEGLUDEC
  16. LOSARTAN [Concomitant]
     Active Substance: LOSARTAN

REACTIONS (1)
  - Sinusitis [Unknown]
